FAERS Safety Report 7649598-0 (Version None)
Quarter: 2011Q3

REPORT INFORMATION
  Report Type: 
  Country: None (occurrence: None)
  Receive Date: 20110727
  Receipt Date: 20110712
  Transmission Date: 20111222
  Serious: Yes (Hospitalization)
  Sender: FDA-Public Use
  Company Number: KV201100009

PATIENT
  Age: 49 Year
  Sex: Male

DRUGS (15)
  1. LANTUS [Concomitant]
  2. METFORMIN HCL [Concomitant]
  3. MOTRIN (IBUPRFEN) [Concomitant]
  4. ALBUTEROL [Concomitant]
  5. ATENOLOL [Concomitant]
  6. ASPIRIN [Concomitant]
  7. NEURONTIN [Concomitant]
  8. PLAVIX [Concomitant]
  9. FERROUS SULFATE TAB [Concomitant]
  10. ISOSORBIDE MONONITRATE [Suspect]
     Indication: PRODUCT USED FOR UNKNOWN INDICATION
     Dosage: 60 MG, BID, ORAL
     Route: 048
     Dates: start: 20081028, end: 20081101
  11. TRIAMTERENE AND HYDROCHLOROTHIAZID (HYDROCHLOROTHIAZIDE, TRIAMTERENE) [Concomitant]
  12. PROTONIX [Concomitant]
  13. LISINOPRIL [Concomitant]
  14. PRAVASTATIN [Concomitant]
  15. ERYTHROMYCIN [Concomitant]

REACTIONS (24)
  - RENAL FAILURE ACUTE [None]
  - H1N1 INFLUENZA [None]
  - DYSPNOEA EXERTIONAL [None]
  - NOCTURIA [None]
  - PYREXIA [None]
  - BRONCHITIS VIRAL [None]
  - PAIN [None]
  - NECK PAIN [None]
  - HYPERHIDROSIS [None]
  - PRODUCTIVE COUGH [None]
  - LIPASE INCREASED [None]
  - CHEST PAIN [None]
  - DIZZINESS [None]
  - HYPOAESTHESIA [None]
  - MYOCARDIAL INFARCTION [None]
  - DECREASED INTEREST [None]
  - SHOCK [None]
  - EMOTIONAL DISTRESS [None]
  - MICTURITION URGENCY [None]
  - ARTHRALGIA [None]
  - ARRHYTHMIA [None]
  - INJURY [None]
  - HAEMORRHAGE [None]
  - DISABILITY [None]
